FAERS Safety Report 9239977 (Version 1)
Quarter: 2013Q2

REPORT INFORMATION
  Report Type: Spontaneous
  Country: CA (occurrence: CA)
  Receive Date: 20130418
  Receipt Date: 20130418
  Transmission Date: 20140414
  Serious: Yes (Life-Threatening, Hospitalization)
  Sender: FDA-Public Use
  Company Number: CA-TEVA-398732USA

PATIENT
  Age: 74 Year
  Sex: Female
  Weight: 72 kg

DRUGS (10)
  1. AMIODARONE [Suspect]
     Dosage: 300 MILLIGRAM DAILY;
     Route: 048
  2. CALCIUM CITRATE [Concomitant]
  3. CARVEDILOL [Concomitant]
  4. ENTERIC COATED ASA [Concomitant]
  5. EZETROL [Concomitant]
  6. LASIX [Concomitant]
  7. LIPITOR [Concomitant]
  8. RAMIPRIL [Concomitant]
  9. SPIRONOLACTONE [Concomitant]
  10. VITAMIN D [Concomitant]

REACTIONS (5)
  - Cardiac failure [Recovered/Resolved]
  - Disease progression [Recovered/Resolved]
  - Drug ineffective [Recovered/Resolved]
  - Hepatic enzyme increased [Recovered/Resolved]
  - Ventricular tachycardia [Recovered/Resolved]
